FAERS Safety Report 6904392 (Version 5)
Quarter: 2015Q4

REPORT INFORMATION
  Report Type: Spontaneous
  Country: SE (occurrence: SE)
  Receive Date: 20090209
  Receipt Date: 20151119
  Transmission Date: 20160305
  Serious: Yes (Death, Other)
  Sender: FDA-Public Use
  Company Number: SE-BIOGENIDEC-2009BI002622

PATIENT
  Age: 22 Year
  Sex: Female

DRUGS (1)
  1. TYSABRI [Suspect]
     Active Substance: NATALIZUMAB
     Indication: PRODUCT USED FOR UNKNOWN INDICATION
     Route: 042
     Dates: start: 200805, end: 200808

REACTIONS (2)
  - Multiple sclerosis relapse [Fatal]
  - Drug ineffective [Unknown]

NARRATIVE: CASE EVENT DATE: 200809
